FAERS Safety Report 21984376 (Version 1)
Quarter: 2023Q1

REPORT INFORMATION
  Report Type: Spontaneous
  Country: US (occurrence: None)
  Receive Date: 20230210
  Receipt Date: 20230210
  Transmission Date: 20230418
  Serious: Yes (Other)
  Sender: FDA-Public Use
  Company Number: None

PATIENT
  Age: 40 Year
  Sex: 0

DRUGS (7)
  1. HERBALS\TETRAHYDROCANNABINOL MIXED [Suspect]
     Active Substance: HERBALS\TETRAHYDROCANNABINOL MIXED
     Indication: Sleep disorder
     Dates: start: 20230208, end: 20230208
  2. Primadone [Concomitant]
  3. Escitalipram [Concomitant]
  4. Lo loestrin [Concomitant]
  5. CLINDAMYCIN [Concomitant]
     Active Substance: CLINDAMYCIN
  6. IBUPROFEN [Concomitant]
     Active Substance: IBUPROFEN
  7. ADVIL PM [Concomitant]
     Active Substance: DIPHENHYDRAMINE CITRATE\IBUPROFEN

REACTIONS (9)
  - Photopsia [None]
  - Dizziness [None]
  - Gait inability [None]
  - Tremor [None]
  - Seizure [None]
  - Dyskinesia [None]
  - Musculoskeletal stiffness [None]
  - Muscle spasms [None]
  - Loss of consciousness [None]

NARRATIVE: CASE EVENT DATE: 20230208
